FAERS Safety Report 8775728 (Version 1)
Quarter: 2012Q4

REPORT INFORMATION
  Report Type: 
  Country: US (occurrence: US)
  Receive Date: 20120910
  Receipt Date: 20120910
  Transmission Date: 20130627
  Serious: Yes (Other)
  Sender: FDA-Public Use
  Company Number: US-PFIZER INC-2012220409

PATIENT
  Age: 62 Year
  Sex: Female
  Weight: 112 kg

DRUGS (8)
  1. PRISTIQ [Suspect]
     Indication: DEPRESSION
     Dosage: 50 mg, 1x/day
     Route: 048
     Dates: end: 201110
  2. PRISTIQ [Suspect]
     Dosage: 100 mg, 1x/day
     Route: 048
     Dates: start: 201110, end: 201110
  3. PRISTIQ [Suspect]
     Dosage: 50 mg, 1x/day
     Route: 048
     Dates: start: 201110, end: 20120829
  4. PRISTIQ [Suspect]
     Dosage: UNK
     Dates: start: 20120903
  5. VALIUM [Concomitant]
     Indication: SPINAL OSTEOARTHRITIS
     Dosage: UNK
  6. DIOVAN HCT [Concomitant]
     Indication: HYPERTENSION
     Dosage: UNK
  7. METFORMIN [Concomitant]
     Indication: TYPE 2 DIABETES MELLITUS
     Dosage: 500 mg, UNK
  8. LORTAB [Concomitant]
     Indication: PAIN
     Dosage: UNK

REACTIONS (6)
  - Diverticulitis [Unknown]
  - Personality change [Unknown]
  - Abnormal behaviour [Recovered/Resolved]
  - Low density lipoprotein increased [Unknown]
  - High density lipoprotein decreased [Unknown]
  - Vitamin D decreased [Unknown]
